FAERS Safety Report 16779604 (Version 1)
Quarter: 2019Q3

REPORT INFORMATION
  Report Type: Spontaneous
  Country: US (occurrence: US)
  Receive Date: 20190906
  Receipt Date: 20190906
  Transmission Date: 20191005
  Serious: No
  Sender: FDA-Public Use
  Company Number: US-TEVA-2019-US-1102974

PATIENT
  Sex: Male

DRUGS (2)
  1. HYDROCHLOROTHIAZIDE TEVA [Suspect]
     Active Substance: HYDROCHLOROTHIAZIDE
     Indication: PREHYPERTENSION
     Dates: start: 201902
  2. HYDROCHLOROTHIAZIDE TEVA [Suspect]
     Active Substance: HYDROCHLOROTHIAZIDE
     Dates: start: 20190805

REACTIONS (2)
  - Drug ineffective [Unknown]
  - Micturition frequency decreased [Unknown]

NARRATIVE: CASE EVENT DATE: 201908
